FAERS Safety Report 8188747-5 (Version None)
Quarter: 2012Q1

REPORT INFORMATION
  Report Type: 
  Country: None (occurrence: None)
  Receive Date: 20120306
  Receipt Date: 20120301
  Transmission Date: 20120608
  Serious: Yes (Hospitalization)
  Sender: FDA-Public Use
  Company Number: BR-ABBOTT-12P-020-0910765-00

PATIENT
  Sex: Female
  Weight: 41 kg

DRUGS (4)
  1. HUMIRA [Suspect]
     Indication: CROHN'S DISEASE
     Dosage: 160 MG INDUCTION DOSE
     Route: 058
     Dates: start: 20110701, end: 20110701
  2. BACTRIM [Suspect]
     Indication: URINARY TRACT INFECTION
     Route: 048
     Dates: start: 20111101, end: 20111101
  3. HUMIRA [Suspect]
     Dosage: 80 MG INDUCTION DOSE
     Route: 058
     Dates: start: 20110716, end: 20110716
  4. HUMIRA [Suspect]
     Route: 058
     Dates: start: 20110801

REACTIONS (14)
  - MYDRIASIS [None]
  - GASTROINTESTINAL PAIN [None]
  - URINARY TRACT INFECTION [None]
  - ANAEMIA [None]
  - DIARRHOEA [None]
  - OCULAR HYPERAEMIA [None]
  - VOMITING [None]
  - URINARY TRACT PAIN [None]
  - ABDOMINAL PAIN [None]
  - PYREXIA [None]
  - TREMOR [None]
  - SOMNOLENCE [None]
  - PHARYNGITIS [None]
  - INTESTINAL OBSTRUCTION [None]
